FAERS Safety Report 15995668 (Version 11)
Quarter: 2019Q4

REPORT INFORMATION
  Report Type: Report from Study
  Country: None (occurrence: NL)
  Receive Date: 20190222
  Receipt Date: 20191125
  Transmission Date: 20200122
  Serious: Yes (Hospitalization, Other)
  Sender: FDA-Public Use
  Company Number: NL-ABBVIE-17K-114-2182495-00

PATIENT
  Age: 68 Year
  Sex: Male
  Weight: 75 kg

DRUGS (7)
  1. MACROGOL [Concomitant]
     Active Substance: POLYETHYLENE GLYCOLS
     Indication: PRODUCT USED FOR UNKNOWN INDICATION
  2. CLOZAPINE. [Concomitant]
     Active Substance: CLOZAPINE
     Indication: PRODUCT USED FOR UNKNOWN INDICATION
  3. AMANTADINE. [Concomitant]
     Active Substance: AMANTADINE HYDROCHLORIDE
     Indication: PRODUCT USED FOR UNKNOWN INDICATION
  4. DUODOPA [Suspect]
     Active Substance: CARBIDOPA\LEVODOPA
     Dosage: MD 12.5 CD 4.3 ED 4.3 CND 2.0 24 HRS TREATMENT
     Route: 050
  5. DUODOPA [Suspect]
     Active Substance: CARBIDOPA\LEVODOPA
     Indication: PARKINSON^S DISEASE
     Dosage: MD 12.5 CD 4.2 ED 5 ND 2
     Route: 050
     Dates: start: 20180901
  6. BACLOFEN. [Concomitant]
     Active Substance: BACLOFEN
     Indication: PRODUCT USED FOR UNKNOWN INDICATION
  7. DUODOPA [Suspect]
     Active Substance: CARBIDOPA\LEVODOPA
     Dosage: MD 11.0 USE OF PUMP 24 HOURS TREATMENT
     Route: 050

REACTIONS (61)
  - Cognitive disorder [Not Recovered/Not Resolved]
  - Cerebral haemorrhage [Recovering/Resolving]
  - Joint injury [Not Recovered/Not Resolved]
  - Micturition urgency [Not Recovered/Not Resolved]
  - Dysuria [Not Recovered/Not Resolved]
  - Gait inability [Not Recovered/Not Resolved]
  - Gait disturbance [Not Recovered/Not Resolved]
  - Sleep disorder [Recovered/Resolved]
  - Coma [Recovered/Resolved]
  - Disturbance in attention [Not Recovered/Not Resolved]
  - Fall [Recovered/Resolved]
  - Malaise [Unknown]
  - Circadian rhythm sleep disorder [Not Recovered/Not Resolved]
  - Confusional state [Not Recovered/Not Resolved]
  - Mobility decreased [Not Recovered/Not Resolved]
  - CSF test abnormal [Recovering/Resolving]
  - Balance disorder [Not Recovered/Not Resolved]
  - Restlessness [Not Recovered/Not Resolved]
  - Speech disorder [Not Recovered/Not Resolved]
  - Feeding disorder [Recovering/Resolving]
  - Weight decreased [Not Recovered/Not Resolved]
  - Stoma site erythema [Not Recovered/Not Resolved]
  - On and off phenomenon [Not Recovered/Not Resolved]
  - Therapeutic product effect incomplete [Not Recovered/Not Resolved]
  - Pain [Not Recovered/Not Resolved]
  - Underdose [Recovered/Resolved]
  - Memory impairment [Not Recovered/Not Resolved]
  - Muscle spasticity [Unknown]
  - Abnormal behaviour [Not Recovered/Not Resolved]
  - Blood pressure fluctuation [Not Recovered/Not Resolved]
  - Malaise [Not Recovered/Not Resolved]
  - Diplopia [Not Recovered/Not Resolved]
  - Stoma site discharge [Not Recovered/Not Resolved]
  - Delirium [Not Recovered/Not Resolved]
  - Fatigue [Not Recovered/Not Resolved]
  - Dyskinesia [Not Recovered/Not Resolved]
  - Bradykinesia [Not Recovered/Not Resolved]
  - Hyperkinesia [Unknown]
  - Device issue [Unknown]
  - General physical health deterioration [Not Recovered/Not Resolved]
  - Head injury [Recovered/Resolved]
  - Gait disturbance [Recovered/Resolved]
  - Medical device site dryness [Unknown]
  - Abnormal dreams [Not Recovered/Not Resolved]
  - Dystonia [Recovered/Resolved]
  - Fall [Not Recovered/Not Resolved]
  - Hallucination [Not Recovered/Not Resolved]
  - Insomnia [Recovered/Resolved]
  - Thinking abnormal [Not Recovered/Not Resolved]
  - Flatulence [Not Recovered/Not Resolved]
  - Wheelchair user [Not Recovered/Not Resolved]
  - Constipation [Not Recovered/Not Resolved]
  - Hydrocephalus [Unknown]
  - Depressed level of consciousness [Recovering/Resolving]
  - Asthenia [Not Recovered/Not Resolved]
  - Parkinson^s disease [Not Recovered/Not Resolved]
  - Influenza [Recovered/Resolved]
  - Freezing phenomenon [Not Recovered/Not Resolved]
  - Therapeutic product effect incomplete [Recovered/Resolved]
  - Device alarm issue [Unknown]
  - Urinary tract infection [Not Recovered/Not Resolved]

NARRATIVE: CASE EVENT DATE: 2018
